FAERS Safety Report 9165433 (Version 1)
Quarter: 2013Q1

REPORT INFORMATION
  Report Type: Spontaneous
  Country: BR (occurrence: BR)
  Receive Date: 20130315
  Receipt Date: 20130315
  Transmission Date: 20140127
  Serious: Yes (Hospitalization, Other)
  Sender: FDA-Public Use
  Company Number: PHHY2013BR013672

PATIENT
  Age: 49 Year
  Sex: Male
  Weight: 61 kg

DRUGS (7)
  1. FORASEQ [Suspect]
     Indication: LUNG DISORDER
     Dosage: UKN, UKN, UKN
  2. FORASEQ [Suspect]
     Indication: DYSPNOEA
     Dosage: UNK UKN, UNK
     Dates: start: 20130206
  3. FORASEQ [Suspect]
     Dosage: ONE CAPSULE OF EACH TREATMENT
  4. SIMVASTATIN [Concomitant]
     Indication: BLOOD CHOLESTEROL INCREASED
     Dosage: 1 DF, QD
     Route: 048
  5. AAS [Concomitant]
     Indication: BLOOD CHOLESTEROL INCREASED
     Dosage: 1 DF, QD
     Route: 048
  6. OMEPRAZOLE [Concomitant]
     Indication: GASTRITIS PROPHYLAXIS
     Dosage: 1 DF, QD
     Route: 048
  7. LOSARTAN [Concomitant]
     Dosage: 2 DF, QD
     Route: 048

REACTIONS (2)
  - Infarction [Unknown]
  - Venous thrombosis [Unknown]
